FAERS Safety Report 19007040 (Version 1)
Quarter: 2021Q1

REPORT INFORMATION
  Report Type: Spontaneous
  Country: US (occurrence: US)
  Receive Date: 20210313
  Receipt Date: 20210313
  Transmission Date: 20210420
  Serious: No
  Sender: FDA-Public Use
  Company Number: None

PATIENT
  Age: 72 Year
  Sex: Female
  Weight: 65.25 kg

DRUGS (11)
  1. MELOXICAM. [Concomitant]
     Active Substance: MELOXICAM
  2. VITAMIN B COMPLEX [Concomitant]
     Active Substance: CYANOCOBALAMIN\DEXPANTHENOL\NIACINAMIDE\PYRIDOXINE HYDROCHLORIDE\RIBOFLAVIN 5^-PHOSPHATE SODIUM\THIAMINE HYDROCHLORIDE\VITAMIN B COMPLEX
  3. SYNTHROID [Concomitant]
     Active Substance: LEVOTHYROXINE SODIUM
  4. CALCIUM [Concomitant]
     Active Substance: CALCIUM
  5. D 3 [Concomitant]
  6. PLENVU [Suspect]
     Active Substance: ASCORBIC ACID\POLYETHYLENE GLYCOL 3350\POTASSIUM CHLORIDE\SODIUM ASCORBATE\SODIUM CHLORIDE\SODIUM SULFATE
     Indication: COLONOSCOPY
     Dosage: ?          OTHER FREQUENCY:2 DIFFERENT PACKAG;?
     Route: 048
     Dates: start: 20210224, end: 20210225
  7. POTASSIUM [Concomitant]
     Active Substance: POTASSIUM
  8. PROBIOTIC [Concomitant]
     Active Substance: PROBIOTICS NOS
  9. ALLERGY [Concomitant]
     Active Substance: UNSPECIFIED INGREDIENT
  10. MAGNESIUM [Concomitant]
     Active Substance: MAGNESIUM
  11. LOSARTAN. [Concomitant]
     Active Substance: LOSARTAN

REACTIONS (1)
  - Gastrointestinal disorder [None]

NARRATIVE: CASE EVENT DATE: 20210313
